FAERS Safety Report 9238570 (Version 1)
Quarter: 2013Q2

REPORT INFORMATION
  Report Type: Spontaneous
  Country: US (occurrence: None)
  Receive Date: 20130416
  Receipt Date: 20130416
  Transmission Date: 20140414
  Serious: Yes (Hospitalization)
  Sender: FDA-Public Use
  Company Number: 1667567

PATIENT
  Age: 6 Year
  Sex: Female
  Weight: 21.7 kg

DRUGS (8)
  1. LORAZEPAM [Suspect]
     Indication: SEROTONIN SYNDROME
     Route: 042
  2. MIDAZOLAM [Suspect]
     Indication: SEROTONIN SYNDROME
     Route: 042
  3. NORMAL SALINE [Concomitant]
  4. (DEXMEDETOMIDINE) [Concomitant]
  5. (DEXTROSE W/SODIUM CHLORIDE) [Concomitant]
  6. (POTASSIUM) [Concomitant]
  7. (SODIUM BICARBONATE) [Concomitant]
  8. (LISDEXAMFETAMINE) [Concomitant]

REACTIONS (8)
  - Metabolic acidosis [None]
  - Troponin I increased [None]
  - Myoglobin blood increased [None]
  - Blood creatine phosphokinase increased [None]
  - Heart rate increased [None]
  - Respiratory rate increased [None]
  - Hypokalaemia [None]
  - Hypocalcaemia [None]
